FAERS Safety Report 10197356 (Version 1)
Quarter: 2014Q2

REPORT INFORMATION
  Report Type: Spontaneous
  Country: US (occurrence: None)
  Receive Date: 20140523
  Receipt Date: 20140523
  Transmission Date: 20141212
  Serious: Yes (Hospitalization)
  Sender: FDA-Public Use
  Company Number: None

PATIENT
  Age: 71 Year
  Sex: Male

DRUGS (2)
  1. RANEXA 500MG GILEAD [Suspect]
     Indication: ANGINA PECTORIS
     Dosage: ONE TABLET
     Dates: start: 20140514, end: 20140521
  2. RANEXA 500MG GILEAD [Suspect]
     Indication: DYSPNOEA
     Dosage: ONE TABLET
     Dates: start: 20140514, end: 20140521

REACTIONS (2)
  - Loss of consciousness [None]
  - Blood pressure decreased [None]
